FAERS Safety Report 4519351-5 (Version None)
Quarter: 2004Q4

REPORT INFORMATION
  Report Type: 
  Country: None (occurrence: None)
  Receive Date: 20041202
  Receipt Date: 20041112
  Transmission Date: 20050328
  Serious: Yes (Other)
  Sender: FDA-Public Use
  Company Number: 2004092542

PATIENT

DRUGS (2)
  1. HEPARIN SODIUM [Suspect]
     Indication: ILL-DEFINED DISORDER
  2. PROTEASE (PROTEASE) [Suspect]
     Indication: ILL-DEFINED DISORDER

REACTIONS (1)
  - RIGHT VENTRICULAR FAILURE [None]
